FAERS Safety Report 4814793-2 (Version None)
Quarter: 2005Q4

REPORT INFORMATION
  Report Type: 
  Country: None (occurrence: None)
  Receive Date: 20051028
  Receipt Date: 20050729
  Transmission Date: 20060501
  Serious: Yes (Other)
  Sender: FDA-Public Use
  Company Number: GBWYE868929JUL05

PATIENT
  Sex: Female
  Weight: 68 kg

DRUGS (10)
  1. ENBREL [Suspect]
     Indication: RHEUMATOID ARTHRITIS
     Route: 058
     Dates: start: 20050323, end: 20050711
  2. ENBREL [Suspect]
     Route: 058
     Dates: start: 20050714, end: 20050721
  3. NAPROXEN [Concomitant]
     Indication: RHEUMATOID ARTHRITIS
     Route: 048
  4. FOLIC ACID [Concomitant]
     Indication: PROPHYLAXIS
     Dosage: 5MG SIX DAYS A WEEK
     Route: 048
  5. CALCIUM CARBONATE/COLECALCIFEROL [Concomitant]
     Indication: OSTEOPOROSIS
  6. FOSAMAX [Concomitant]
     Indication: OSTEOPOROSIS
     Dosage: 70MG WEEKLY
     Route: 048
  7. PARIET [Concomitant]
     Route: 048
  8. METOPROLOL [Concomitant]
     Indication: BLOOD PRESSURE ABNORMAL
     Route: 048
  9. ASPIRIN [Concomitant]
     Indication: PROPHYLAXIS
     Route: 048
  10. METHOTREXATE [Concomitant]
     Route: 048

REACTIONS (4)
  - ANXIETY [None]
  - CEREBRAL INFARCTION [None]
  - INFARCTION [None]
  - MUSCLE SPASMS [None]
